FAERS Safety Report 5114121-1 (Version None)
Quarter: 2006Q3

REPORT INFORMATION
  Report Type: 
  Country: None (occurrence: None)
  Receive Date: 20060925
  Receipt Date: 20060914
  Transmission Date: 20061208
  Serious: Yes (Disabling, Other)
  Sender: FDA-Public Use
  Company Number: 2006SE04921

PATIENT
  Age: 48 Year
  Sex: Female

DRUGS (2)
  1. ATENOLOL [Suspect]
     Indication: HYPERTENSION
     Route: 065
  2. ATORVASTATIN [Suspect]
     Indication: LIPIDS INCREASED
     Route: 048

REACTIONS (4)
  - ABDOMINAL PAIN [None]
  - ASTHENIA [None]
  - LIPIDS INCREASED [None]
  - MUSCLE SPASMS [None]
